FAERS Safety Report 12070150 (Version 2)
Quarter: 2016Q1

REPORT INFORMATION
  Report Type: Spontaneous
  Country: JP (occurrence: JP)
  Receive Date: 20160211
  Receipt Date: 20160301
  Transmission Date: 20160526
  Serious: Yes (Death, Life-Threatening, Other)
  Sender: FDA-Public Use
  Company Number: JP-BAYER-2016-020136

PATIENT
  Age: 57 Year
  Sex: Female
  Weight: 51 kg

DRUGS (6)
  1. STIVARGA [Suspect]
     Active Substance: REGORAFENIB
     Indication: COLORECTAL CANCER
     Dosage: (ON FOR 2 WEEKS AND OFF FOR 2 WEEKS)120 MG, QD
     Route: 048
     Dates: start: 20160112, end: 20160125
  2. MAGMITT [Concomitant]
     Active Substance: MAGNESIUM OXIDE
     Dosage: UNK
     Route: 048
  3. OXYCONTIN [Concomitant]
     Active Substance: OXYCODONE HYDROCHLORIDE
     Dosage: UNK
     Route: 048
  4. CELECOXIB. [Concomitant]
     Active Substance: CELECOXIB
     Indication: COLON CANCER
     Dosage: UNK
     Route: 048
  5. RABEPRAZOLE SODIUM. [Concomitant]
     Active Substance: RABEPRAZOLE SODIUM
     Indication: COLON CANCER
     Dosage: UNK
     Route: 048
  6. PYDOXAL [Concomitant]
     Active Substance: PYRIDOXAL
     Indication: PALMAR-PLANTAR ERYTHRODYSAESTHESIA SYNDROME
     Dosage: UNK
     Route: 048

REACTIONS (10)
  - Disseminated intravascular coagulation [Fatal]
  - Platelet count decreased [Not Recovered/Not Resolved]
  - Hepatic failure [None]
  - Alanine aminotransferase increased [None]
  - Colon cancer [Fatal]
  - Blood bilirubin increased [Not Recovered/Not Resolved]
  - Aspartate aminotransferase increased [None]
  - Fatigue [Not Recovered/Not Resolved]
  - Liver disorder [None]
  - Rash [None]

NARRATIVE: CASE EVENT DATE: 20160124
